FAERS Safety Report 7484509-2 (Version None)
Quarter: 2011Q2

REPORT INFORMATION
  Report Type: 
  Country: None (occurrence: None)
  Receive Date: 20110517
  Receipt Date: 20110509
  Transmission Date: 20111010
  Serious: No
  Sender: FDA-Public Use
  Company Number: US-BIOGENIDEC-2010BI038214

PATIENT
  Age: 38 Year
  Sex: Female

DRUGS (3)
  1. AVONEX [Concomitant]
     Indication: MULTIPLE SCLEROSIS
     Route: 030
  2. TYSABRI [Suspect]
     Indication: MULTIPLE SCLEROSIS
     Route: 042
     Dates: start: 20100920, end: 20110310
  3. STEROIDS [Concomitant]
     Indication: PREMEDICATION
     Dates: start: 20101101

REACTIONS (5)
  - VOMITING [None]
  - URTICARIA [None]
  - FATIGUE [None]
  - PRURITUS [None]
  - DRUG SPECIFIC ANTIBODY PRESENT [None]
